FAERS Safety Report 5469717-4 (Version None)
Quarter: 2007Q3

REPORT INFORMATION
  Report Type: 
  Country: None (occurrence: None)
  Receive Date: 20070926
  Receipt Date: 20070926
  Transmission Date: 20080115
  Serious: Yes (Life-Threatening, Hospitalization, Other)
  Sender: FDA-Public Use
  Company Number: None

PATIENT
  Age: 62 Year
  Sex: Male

DRUGS (10)
  1. AMIODARONE HCL [Suspect]
     Indication: VENTRICULAR TACHYCARDIA
     Dosage: 200MG, QD, ORAL
     Route: 048
  2. SIMVASTATIN [Suspect]
     Indication: HYPERCHOLESTEROLAEMIA
     Dosage: 40MG, QD, ORAL
     Route: 048
  3. DIGITOXIN TAB [Suspect]
     Indication: CARDIAC FAILURE
     Dosage: 0.07MG, QD, ORAL
     Route: 048
  4. RAMIPRIL [Concomitant]
  5. CARVEDILOL [Concomitant]
  6. TORSEMIDE [Concomitant]
  7. SPIRONOLACTONE [Concomitant]
  8. MOLSIDOMINE [Concomitant]
  9. ASPIRIN [Concomitant]
  10. CLOPIDOGREL [Concomitant]

REACTIONS (3)
  - DRUG INTERACTION [None]
  - RENAL IMPAIRMENT [None]
  - RHABDOMYOLYSIS [None]
